FAERS Safety Report 13627285 (Version 4)
Quarter: 2019Q2

REPORT INFORMATION
  Report Type: Report from Study
  Country: JP (occurrence: JP)
  Receive Date: 20170608
  Receipt Date: 20190612
  Transmission Date: 20190711
  Serious: Yes (Hospitalization)
  Sender: FDA-Public Use
  Company Number: JP-AMGEN-JPNCT2017086048

PATIENT
  Age: 70 Year
  Sex: Female
  Weight: 48 kg

DRUGS (18)
  1. XARELTO [Concomitant]
     Active Substance: RIVAROXABAN
     Indication: DEEP VEIN THROMBOSIS
     Dosage: 15 MILLIGRAM
     Route: 048
  2. ASPARA POTASSIUM [Concomitant]
     Active Substance: POTASSIUM ASPARTATE
     Indication: HYPOKALAEMIA
     Dosage: 3 GRAM
     Route: 048
  3. ENALAPRIL MALEATE. [Concomitant]
     Active Substance: ENALAPRIL MALEATE
     Indication: HYPERTENSION
     Dosage: 2.5 MILLIGRAM
     Route: 048
     Dates: start: 20161026
  4. AUGMENTINE [Concomitant]
     Active Substance: AMOXICILLIN\CLAVULANATE POTASSIUM
     Indication: PNEUMONIA ASPIRATION
     Dosage: UNK
     Route: 048
     Dates: start: 20160925, end: 20161006
  5. PASETOCIN [Concomitant]
     Active Substance: AMOXICILLIN
     Indication: PNEUMONIA ASPIRATION
     Dosage: 750 MILLIGRAM
     Route: 048
     Dates: start: 20160925, end: 20161006
  6. MEROPEN [Concomitant]
     Active Substance: MEROPENEM
     Dosage: 3 GRAM
     Route: 041
     Dates: start: 20161011, end: 20161024
  7. CINACALCET HCL [Suspect]
     Active Substance: CINACALCET HYDROCHLORIDE
     Dosage: 75 MILLIGRAM, QD
     Route: 048
     Dates: start: 20161001, end: 20161018
  8. CINACALCET HCL [Suspect]
     Active Substance: CINACALCET HYDROCHLORIDE
     Dosage: 100 MILLIGRAM, QD
     Route: 048
     Dates: start: 20161019
  9. ZYPREXA [Concomitant]
     Active Substance: OLANZAPINE
     Indication: PERSECUTORY DELUSION
     Dosage: 1.25 MILLIGRAM
     Route: 048
  10. ZOLPIDEM TARTRATE. [Concomitant]
     Active Substance: ZOLPIDEM TARTRATE
     Indication: INSOMNIA
     Dosage: 5 MILLIGRAM
     Route: 048
  11. FAMOTIDINE. [Concomitant]
     Active Substance: FAMOTIDINE
     Indication: GASTRITIS
     Dosage: 40 MILLIGRAM
     Route: 048
     Dates: start: 20160920
  12. CINACALCET HCL [Suspect]
     Active Substance: CINACALCET HYDROCHLORIDE
     Indication: HYPERPARATHYROIDISM PRIMARY
     Dosage: 25 MILLIGRAM, QD
     Route: 048
     Dates: start: 20160923, end: 20160930
  13. SEPAZON [Concomitant]
     Active Substance: CLOXAZOLAM
     Indication: INSOMNIA
     Dosage: 1 MILLIGRAM
     Route: 048
  14. PHOSRIBBON [Concomitant]
     Indication: HYPOPHOSPHATAEMIA
     Dosage: 1200 MILLIGRAM
     Route: 048
  15. DOGMATYL [Concomitant]
     Active Substance: SULPIRIDE
     Indication: PERSECUTORY DELUSION
     Dosage: 5 MILLIGRAM
     Route: 048
     Dates: end: 20161025
  16. ENALAPRIL [Concomitant]
     Active Substance: ENALAPRIL
     Indication: HYPERTENSION
     Dosage: 2.5 MILLIGRAM
     Route: 048
     Dates: start: 20161026
  17. CALONAL [Concomitant]
     Active Substance: ACETAMINOPHEN
  18. ZOSYN [Concomitant]
     Active Substance: PIPERACILLIN SODIUM\TAZOBACTAM SODIUM
     Indication: PNEUMONIA ASPIRATION
     Dosage: 4.5 GRAM
     Route: 042
     Dates: start: 20161008, end: 20161011

REACTIONS (5)
  - Pneumonia aspiration [Recovering/Resolving]
  - Anaemia [Recovering/Resolving]
  - Urinary tract infection [Recovered/Resolved]
  - Chondrocalcinosis pyrophosphate [Unknown]
  - Chondrocalcinosis pyrophosphate [Recovering/Resolving]

NARRATIVE: CASE EVENT DATE: 20160925
